FAERS Safety Report 10230284 (Version 1)
Quarter: 2014Q2

REPORT INFORMATION
  Report Type: Spontaneous
  Country: DE (occurrence: DE)
  Receive Date: 20140611
  Receipt Date: 20140611
  Transmission Date: 20141212
  Serious: Yes (Death, Life-Threatening, Hospitalization)
  Sender: FDA-Public Use
  Company Number: DE-MYLANLABS-2014S1012566

PATIENT
  Age: 85 Year
  Sex: Female

DRUGS (16)
  1. PREDNISOLON [Suspect]
     Route: 048
     Dates: start: 20130808
  2. PREDNISOLON [Suspect]
     Route: 048
     Dates: start: 20130809
  3. PREDNISOLON [Suspect]
     Route: 048
     Dates: start: 20130810
  4. PREDNISOLON [Suspect]
     Route: 048
     Dates: start: 20130814, end: 20130816
  5. PREDNISOLON [Suspect]
     Route: 048
     Dates: start: 20130817, end: 20130819
  6. PREDNISOLON [Suspect]
     Route: 048
     Dates: start: 20130820, end: 20130822
  7. PREDNISOLON [Suspect]
     Route: 048
     Dates: start: 20130823, end: 20130824
  8. EXELON [Suspect]
     Dosage: DAILY DOSE: 4.6 MG MILLIGRAM(S) EVERY 24 HOUR
     Route: 062
     Dates: start: 20130816, end: 20130824
  9. RISPERDAL [Suspect]
     Route: 048
     Dates: start: 20130819, end: 20130824
  10. METHIZOL [Concomitant]
     Route: 048
     Dates: end: 20130824
  11. ATMADISC [Concomitant]
     Route: 048
     Dates: end: 20130824
  12. INEGY [Concomitant]
     Route: 048
     Dates: end: 20130817
  13. INEGY [Concomitant]
     Route: 048
     Dates: start: 20130820, end: 20130824
  14. NOVAMINSULFON [Concomitant]
     Route: 048
     Dates: start: 20130808, end: 20130813
  15. NOVAMINSULFON [Concomitant]
     Route: 048
     Dates: start: 20130816, end: 20130822
  16. NOVAMINSULFON [Concomitant]
     Route: 048
     Dates: start: 20130823, end: 20130824

REACTIONS (1)
  - Death [Fatal]
